FAERS Safety Report 5412158-6 (Version None)
Quarter: 2007Q3

REPORT INFORMATION
  Report Type: 
  Country: None (occurrence: None)
  Receive Date: 20070809
  Receipt Date: 20070724
  Transmission Date: 20080115
  Serious: Yes (Other)
  Sender: FDA-Public Use
  Company Number: CTI_00917_2007

PATIENT
  Sex: Male
  Weight: 97.0698 kg

DRUGS (1)
  1. ZYFLO [Suspect]
     Indication: ASTHMA
     Dosage: DF;

REACTIONS (5)
  - ALANINE AMINOTRANSFERASE INCREASED [None]
  - ASPARTATE AMINOTRANSFERASE INCREASED [None]
  - BLOOD ALKALINE PHOSPHATASE INCREASED [None]
  - FEELING ABNORMAL [None]
  - SERUM FERRITIN INCREASED [None]
